FAERS Safety Report 14133677 (Version 2)
Quarter: 2017Q4

REPORT INFORMATION
  Report Type: Report from Study
  Country: US (occurrence: US)
  Receive Date: 20171026
  Receipt Date: 20171206
  Transmission Date: 20180321
  Serious: Yes (Hospitalization)
  Sender: FDA-Public Use
  Company Number: PHHO2017US014666

PATIENT
  Sex: Female

DRUGS (6)
  1. CYCLOPHOSPHAMIDE. [Suspect]
     Active Substance: CYCLOPHOSPHAMIDE
     Indication: MANTLE CELL LYMPHOMA
     Dosage: 300 MG/M2, C1, 3,5 EVERY 12 HOURS FOR 6 DOSES ON DAYS 3-5
     Route: 041
     Dates: start: 20170914
  2. OFATUMUMAB [Suspect]
     Active Substance: OFATUMUMAB
     Indication: MANTLE CELL LYMPHOMA
     Dosage: 1000 MG, DAY ONE OF EACH CYCLE
     Route: 041
     Dates: start: 20170912
  3. VINCRISTINE [Suspect]
     Active Substance: VINCRISTINE
     Indication: MANTLE CELL LYMPHOMA
     Dosage: 1.4 MG/M2, C1, 3,5 ONCE ON DAY 6 AND 13
     Route: 042
     Dates: start: 20170917
  4. DOXORUBICIN [Suspect]
     Active Substance: DOXORUBICIN
     Indication: MANTLE CELL LYMPHOMA
     Dosage: 16.6 MG/M2, C1, 3,5 DAILYX3 DAYS STARTING ON DAY 6
     Route: 041
     Dates: start: 20170917
  5. METHOTREXATE. [Suspect]
     Active Substance: METHOTREXATE
     Indication: MANTLE CELL LYMPHOMA
     Dosage: 1000 MG/M2, C,2,4,6 DAY 3
     Route: 042
     Dates: start: 20171005
  6. CYTARABINE. [Suspect]
     Active Substance: CYTARABINE
     Indication: MANTLE CELL LYMPHOMA
     Dosage: 3000 MG/M2, C,2,4,6 EVERY 12 HOURS X4 DOSES STARTING ON DAY 4
     Route: 041
     Dates: start: 20171006

REACTIONS (1)
  - Periorbital oedema [Recovered/Resolved]

NARRATIVE: CASE EVENT DATE: 20171019
